FAERS Safety Report 13739557 (Version 2)
Quarter: 2017Q3

REPORT INFORMATION
  Report Type: Spontaneous
  Country: US (occurrence: US)
  Receive Date: 20170711
  Receipt Date: 20170801
  Transmission Date: 20171127
  Serious: Yes (Disabling, Other)
  Sender: FDA-Public Use
  Company Number: US-BRISTOL-MYERS SQUIBB COMPANY-BMS-2017-061062

PATIENT
  Sex: Female

DRUGS (1)
  1. ABILIFY [Suspect]
     Active Substance: ARIPIPRAZOLE
     Indication: SCHIZOPHRENIA
     Dosage: UNK
     Route: 065
     Dates: start: 2005, end: 2017

REACTIONS (8)
  - Injury [Unknown]
  - Condition aggravated [Unknown]
  - Anxiety [Unknown]
  - Pain [Unknown]
  - Disability [Unknown]
  - Gambling [Unknown]
  - Eating disorder [Unknown]
  - Emotional distress [Unknown]
